FAERS Safety Report 22323193 (Version 1)
Quarter: 2023Q2

REPORT INFORMATION
  Report Type: Spontaneous
  Country: FR (occurrence: FR)
  Receive Date: 20230516
  Receipt Date: 20230516
  Transmission Date: 20230722
  Serious: Yes (Hospitalization)
  Sender: FDA-Public Use
  Company Number: None

PATIENT
  Age: 14 Year
  Sex: Female
  Weight: 82 kg

DRUGS (1)
  1. FLURBIPROFEN [Suspect]
     Active Substance: FLURBIPROFEN
     Indication: Dysmenorrhoea
     Dosage: 2 TABLETS PER DAY IN 1 INTAKE (= 200 MG) ON 14, 15, 17 AND 04/19/2023????2 COMPRIMES PAR JOUR EN 1 P
     Route: 065
     Dates: start: 20230414, end: 20230419

REACTIONS (2)
  - Vomiting [Recovered/Resolved]
  - Acute kidney injury [Recovering/Resolving]

NARRATIVE: CASE EVENT DATE: 20230417
